FAERS Safety Report 4685375-0 (Version None)
Quarter: 2005Q2

REPORT INFORMATION
  Report Type: 
  Country: None (occurrence: None)
  Receive Date: 20050608
  Receipt Date: 20050531
  Transmission Date: 20051028
  Serious: Yes (Other)
  Sender: FDA-Public Use
  Company Number: CA-GLAXOSMITHKLINE-A0561469A

PATIENT
  Age: 52 Year
  Sex: Female

DRUGS (6)
  1. PAROXETINE HCL [Suspect]
     Indication: DRUG USE FOR UNKNOWN INDICATION
     Dosage: 40MG PER DAY
     Route: 048
  2. REQUIP [Concomitant]
     Route: 048
  3. AMANTADINE [Concomitant]
     Route: 065
  4. ESTROGENS [Concomitant]
     Route: 065
  5. MEDROXYPROGESTERONE [Concomitant]
     Route: 065
  6. POTASSIUM CHLORIDE [Concomitant]
     Route: 065

REACTIONS (3)
  - BALANCE DISORDER [None]
  - DEPRESSION [None]
  - HYPOKINESIA [None]
